FAERS Safety Report 10390117 (Version 2)
Quarter: 2015Q3

REPORT INFORMATION
  Report Type: Spontaneous
  Country: FR (occurrence: FR)
  Receive Date: 20140818
  Receipt Date: 20150814
  Transmission Date: 20151125
  Serious: Yes (Hospitalization)
  Sender: FDA-Public Use
  Company Number: FR-PFIZER INC-2014223572

PATIENT
  Age: 76 Year
  Sex: Male

DRUGS (6)
  1. FLECAINE LP [Concomitant]
     Active Substance: FLECAINIDE
  2. ZYVOXID [Suspect]
     Active Substance: LINEZOLID
     Dosage: 1200 MG, 1X/DAY
     Route: 048
     Dates: start: 20140725
  3. DECONTRACTYL [Concomitant]
     Active Substance: MEPHENESIN
  4. FRAXODI [Concomitant]
     Active Substance: NADROPARIN CALCIUM
  5. SEROPLEX [Suspect]
     Active Substance: ESCITALOPRAM OXALATE
     Indication: DEPRESSION
     Dosage: 10 MG, 1X/DAY
     Route: 048
     Dates: end: 20140729
  6. IMOVANE [Concomitant]
     Active Substance: ZOPICLONE

REACTIONS (4)
  - Hyperhidrosis [Recovered/Resolved]
  - Tremor [Recovered/Resolved]
  - Pyrexia [Recovered/Resolved]
  - Tachycardia [Recovered/Resolved]

NARRATIVE: CASE EVENT DATE: 20140726
